FAERS Safety Report 4407526-5 (Version None)
Quarter: 2004Q3

REPORT INFORMATION
  Report Type: 
  Country: None (occurrence: None)
  Receive Date: 20040721
  Receipt Date: 20040705
  Transmission Date: 20050211
  Serious: Yes (Death)
  Sender: FDA-Public Use
  Company Number: F01200400856

PATIENT
  Age: 63 Year
  Sex: Female

DRUGS (3)
  1. OXALIPLATIN [Suspect]
     Indication: BILE DUCT CANCER
     Dosage: 100 MG/M2 OVER 2 HOURS IV INFUSION ON DAY 2, Q2W, INTRAVENOUS NOS
     Route: 042
     Dates: start: 20040408, end: 20040408
  2. (GEMCITABINE) - SOLUTION - 1000 MG/M2 [Suspect]
     Dosage: 1000 MG/M2 ON DAY 1, Q2W, INTRAVENOUS NOS
     Route: 042
     Dates: start: 20040407, end: 20040407
  3. LASIX [Concomitant]

REACTIONS (3)
  - ASCITES [None]
  - DYSPNOEA [None]
  - PERFORMANCE STATUS DECREASED [None]
